FAERS Safety Report 15592194 (Version 3)
Quarter: 2019Q1

REPORT INFORMATION
  Report Type: Report from Study
  Country: GB (occurrence: GB)
  Receive Date: 20181107
  Receipt Date: 20190128
  Transmission Date: 20190417
  Serious: Yes (Hospitalization, Other)
  Sender: FDA-Public Use
  Company Number: GB-BRISTOL-MYERS SQUIBB COMPANY-BMS-2017-106795

PATIENT
  Age: 72 Year
  Sex: Male

DRUGS (1)
  1. ABATACEPT [Suspect]
     Active Substance: ABATACEPT
     Indication: RHEUMATOID ARTHRITIS
     Dosage: 125 MG, QWK
     Route: 058
     Dates: start: 20150327

REACTIONS (4)
  - Herpes zoster [Unknown]
  - Pain [Unknown]
  - Malaise [Unknown]
  - Hernia [Unknown]

NARRATIVE: CASE EVENT DATE: 20181031
